FAERS Safety Report 16208169 (Version 1)
Quarter: 2019Q2

REPORT INFORMATION
  Report Type: Report from Study
  Country: US (occurrence: US)
  Receive Date: 20190417
  Receipt Date: 20190417
  Transmission Date: 20190711
  Serious: Yes (Hospitalization)
  Sender: FDA-Public Use
  Company Number: US-BAYER-2019-074229

PATIENT
  Age: 27 Year
  Sex: Male

DRUGS (7)
  1. ZOLPIDEM [Concomitant]
     Active Substance: ZOLPIDEM\ZOLPIDEM TARTRATE
     Indication: PRODUCT USED FOR UNKNOWN INDICATION
     Dosage: UNK
     Dates: start: 20180416
  2. STIVARGA [Suspect]
     Active Substance: REGORAFENIB
     Indication: BONE CANCER
     Dosage: 1 TABLET DAILY ONE WEEK 1, THEN 2 TABLETS DAILY ON WEEK 2, THEN 3 TABLETS DAILY WEEK 3
     Route: 048
     Dates: start: 20190310
  3. PROMACTA [Suspect]
     Active Substance: ELTROMBOPAG OLAMINE
     Indication: PRODUCT USED FOR UNKNOWN INDICATION
     Dosage: 1 DF, TID (FOR 20 DAYS)
     Route: 048
     Dates: start: 20180820
  4. OXYCODONE HYDROCHLORIDE. [Concomitant]
     Active Substance: OXYCODONE HYDROCHLORIDE
     Indication: PAIN
     Dosage: UNK
     Dates: start: 20180411
  5. CYCLOPHOSPHAMIDE. [Suspect]
     Active Substance: CYCLOPHOSPHAMIDE
     Indication: PRODUCT USED FOR UNKNOWN INDICATION
     Dosage: TAKE 1 CAPSULE DAILY DAYS 1-18
     Dates: start: 20190116, end: 2019
  6. ACID REDUCER [CIMETIDINE] [Concomitant]
     Indication: GASTROOESOPHAGEAL REFLUX DISEASE
     Dosage: UNK
     Dates: start: 20180416
  7. ZOFRAN [Concomitant]
     Active Substance: ONDANSETRON HYDROCHLORIDE
     Indication: VOMITING
     Dosage: UNK
     Dates: start: 20180416

REACTIONS (4)
  - Sepsis [None]
  - Product use in unapproved indication [None]
  - Pneumonia [None]
  - Off label use [None]

NARRATIVE: CASE EVENT DATE: 20190322
